FAERS Safety Report 17170092 (Version 1)
Quarter: 2019Q4

REPORT INFORMATION
  Report Type: Spontaneous
  Country: GB (occurrence: GB)
  Receive Date: 20191218
  Receipt Date: 20191218
  Transmission Date: 20200122
  Serious: Yes (Hospitalization, Other)
  Sender: FDA-Public Use
  Company Number: US-009507513-1903GBR001554

PATIENT
  Age: 28 Year
  Sex: Male

DRUGS (1)
  1. FINASTERIDE. [Suspect]
     Active Substance: FINASTERIDE
     Indication: ALOPECIA
     Dosage: 1/8TH OF A 1MG PILL ONCE
     Route: 048
     Dates: start: 20190220

REACTIONS (25)
  - Suicidal ideation [Unknown]
  - Influenza [Unknown]
  - Muscle atrophy [Unknown]
  - Tinnitus [Unknown]
  - Sleep disorder [Unknown]
  - Penis disorder [Unknown]
  - Weight decreased [Unknown]
  - Sexual dysfunction [Unknown]
  - Incorrect dose administered [Unknown]
  - Malaise [Unknown]
  - Nervous system disorder [Unknown]
  - Diarrhoea [Unknown]
  - Erectile dysfunction [Unknown]
  - Tremor [Unknown]
  - Paraesthesia [Unknown]
  - Depression [Unknown]
  - Cerebral disorder [Unknown]
  - Adverse drug reaction [Unknown]
  - Vitreous floaters [Unknown]
  - Arthralgia [Unknown]
  - Libido decreased [Unknown]
  - Anxiety [Unknown]
  - Myalgia [Unknown]
  - Adverse event [Unknown]
  - Vision blurred [Unknown]

NARRATIVE: CASE EVENT DATE: 2019
